FAERS Safety Report 7713273-4 (Version None)
Quarter: 2011Q3

REPORT INFORMATION
  Report Type: 
  Country: None (occurrence: None)
  Receive Date: 20110826
  Receipt Date: 20110825
  Transmission Date: 20111222
  Serious: Yes (Hospitalization, Other)
  Sender: FDA-Public Use
  Company Number: DE-ABBOTT-11P-062-0841810-00

PATIENT
  Age: 28 Year
  Sex: Female
  Weight: 88 kg

DRUGS (3)
  1. PREDNISOLONE [Concomitant]
     Indication: PRODUCT USED FOR UNKNOWN INDICATION
     Dates: end: 20110101
  2. HUMIRA [Suspect]
     Indication: CROHN'S DISEASE
     Dosage: START WITH 160 MG, EOW
     Route: 058
     Dates: start: 20110325
  3. AZATHIOPRINE [Concomitant]
     Indication: PRODUCT USED FOR UNKNOWN INDICATION
     Dates: end: 20110101

REACTIONS (3)
  - ENTEROVESICAL FISTULA [None]
  - ABSCESS [None]
  - LARGE INTESTINE PERFORATION [None]
